FAERS Safety Report 8276540-4 (Version None)
Quarter: 2012Q2

REPORT INFORMATION
  Report Type: 
  Country: None (occurrence: None)
  Receive Date: 20120406
  Receipt Date: 20120323
  Transmission Date: 20120825
  Serious: Yes (Disabling)
  Sender: FDA-Public Use
  Company Number: DSA_55203_2012

PATIENT
  Age: 64 Year
  Sex: Male

DRUGS (8)
  1. ALLOPURINOL [Suspect]
     Indication: HYPERURICAEMIA
     Dosage: (300 MG QD ORAL)
     Route: 048
     Dates: start: 20070501
  2. RANITIDINE [Concomitant]
  3. ESKIM [Concomitant]
  4. CRESTOR [Concomitant]
  5. CITALOPRAM HYDROBROMIDE [Concomitant]
  6. SEQUACOR [Concomitant]
  7. ASPIRIN [Concomitant]
  8. ENALAPRIL MALEATE [Suspect]
     Indication: HYPERTENSION
     Dosage: (20 MG QD ORAL)
     Route: 048
     Dates: start: 20031101

REACTIONS (2)
  - CHEST PAIN [None]
  - WHITE BLOOD CELL COUNT DECREASED [None]
